FAERS Safety Report 12689263 (Version 1)
Quarter: 2016Q3

REPORT INFORMATION
  Report Type: Spontaneous
  Country: US (occurrence: US)
  Receive Date: 20160826
  Receipt Date: 20160826
  Transmission Date: 20161109
  Serious: No
  Sender: FDA-Public Use
  Company Number: US-LUNDBECK-DKLU2015931

PATIENT
  Age: 61 Year
  Sex: Female

DRUGS (4)
  1. PARKINSONS MEDS [Concomitant]
     Indication: PARKINSON^S DISEASE
     Route: 065
  2. NORTHERA [Suspect]
     Active Substance: DROXIDOPA
     Route: 065
  3. NORTHERA [Suspect]
     Active Substance: DROXIDOPA
     Indication: PRODUCT USED FOR UNKNOWN INDICATION
     Dosage: TITRATION SCHEDULE B
     Route: 065
     Dates: start: 20160626
  4. NORTHERA [Suspect]
     Active Substance: DROXIDOPA
     Route: 065

REACTIONS (2)
  - Headache [Recovered/Resolved]
  - Blood pressure increased [Recovered/Resolved]

NARRATIVE: CASE EVENT DATE: 20160701
